FAERS Safety Report 13025232 (Version 1)
Quarter: 2016Q4

REPORT INFORMATION
  Report Type: Spontaneous
  Country: CN (occurrence: CN)
  Receive Date: 20161214
  Receipt Date: 20161214
  Transmission Date: 20170207
  Serious: Yes (Hospitalization, Other)
  Sender: FDA-Public Use
  Company Number: CN-ASTRAZENECA-2016SF31758

PATIENT
  Sex: Female

DRUGS (4)
  1. TINIDAZOLE. [Suspect]
     Active Substance: TINIDAZOLE
     Indication: HELICOBACTER INFECTION
     Route: 048
     Dates: start: 20160807, end: 20160807
  2. CLINDAMYCIN HYDROCHLORIDE. [Suspect]
     Active Substance: CLINDAMYCIN HYDROCHLORIDE
     Indication: HELICOBACTER INFECTION
     Dosage: 0.3 TABLET THREE TIMES ADAY
     Route: 048
     Dates: start: 20160807, end: 20160807
  3. ESOMEPRAZOLE MAGNESIUM. [Suspect]
     Active Substance: ESOMEPRAZOLE MAGNESIUM
     Indication: HELICOBACTER INFECTION
     Route: 048
     Dates: start: 20160807, end: 20160807
  4. BISMUTH. [Suspect]
     Active Substance: BISMUTH
     Indication: HELICOBACTER INFECTION
     Dosage: ONE TABLET THREE TIMES A DAY
     Route: 048
     Dates: start: 20160807, end: 20160807

REACTIONS (11)
  - Mouth ulceration [Recovering/Resolving]
  - Weight fluctuation [Recovering/Resolving]
  - Rash pustular [Recovering/Resolving]
  - Erythema [Recovering/Resolving]
  - Blister [Recovering/Resolving]
  - Lip ulceration [Recovering/Resolving]
  - Insomnia [Recovering/Resolving]
  - Drug eruption [Recovering/Resolving]
  - Rash pruritic [Recovering/Resolving]
  - Papule [Recovering/Resolving]
  - Pyrexia [Recovering/Resolving]
